FAERS Safety Report 26168649 (Version 1)
Quarter: 2025Q4

REPORT INFORMATION
  Report Type: Spontaneous
  Country: US (occurrence: US)
  Receive Date: 20251217
  Receipt Date: 20251217
  Transmission Date: 20260118
  Serious: Yes (Hospitalization, Other)
  Sender: APPCO PHARMA LLC
  Company Number: US-Appco Pharma LLC-2190704

PATIENT
  Age: 63 Year
  Sex: Female

DRUGS (8)
  1. BUMETANIDE [Suspect]
     Active Substance: BUMETANIDE
     Indication: Product used for unknown indication
  2. TICAGRELOR [Suspect]
     Active Substance: TICAGRELOR
  3. LEVOTHYROXINE [Suspect]
     Active Substance: LEVOTHYROXINE
  4. SPIRONOLACTONE [Suspect]
     Active Substance: SPIRONOLACTONE
  5. SACUBITRIL\VALSARTAN [Suspect]
     Active Substance: SACUBITRIL\VALSARTAN
  6. ROSUVASTATIN [Suspect]
     Active Substance: ROSUVASTATIN
  7. EMPAGLIFLOZIN [Suspect]
     Active Substance: EMPAGLIFLOZIN
  8. CLOPIDOGREL [Suspect]
     Active Substance: CLOPIDOGREL BISULFATE

REACTIONS (1)
  - Acquired haemophilia [Unknown]
